FAERS Safety Report 7723298-0 (Version None)
Quarter: 2011Q3

REPORT INFORMATION
  Report Type: 
  Country: None (occurrence: None)
  Receive Date: 20110901
  Receipt Date: 20110824
  Transmission Date: 20111222
  Serious: Yes (Death, Hospitalization)
  Sender: FDA-Public Use
  Company Number: JP-JNJFOC-20110102047

PATIENT
  Age: 48 Year
  Sex: Female
  Weight: 43 kg

DRUGS (197)
  1. SULFAMETHOXAZOLE [Suspect]
     Dosage: 2 TABS
     Route: 048
     Dates: start: 20101122, end: 20101123
  2. LASIX [Suspect]
     Indication: PRODUCT USED FOR UNKNOWN INDICATION
     Route: 048
     Dates: start: 20101102, end: 20101106
  3. LASIX [Suspect]
     Route: 048
     Dates: start: 20101028, end: 20101028
  4. ALDACTONE [Suspect]
     Route: 048
     Dates: start: 20101026, end: 20101101
  5. ROCEPHIN [Suspect]
     Dates: start: 20101118, end: 20101122
  6. HEPAFLUSH [Concomitant]
     Dates: start: 20100826, end: 20100826
  7. HEPAFLUSH [Concomitant]
     Dates: start: 20101022, end: 20101111
  8. ISOTONIC SODIUM CHLORIDE [Concomitant]
     Route: 042
     Dates: start: 20100928, end: 20100928
  9. NEO-MINOPHAGEN C [Concomitant]
     Dates: start: 20100928, end: 20100928
  10. GLYCERINE [Concomitant]
     Route: 054
     Dates: start: 20101022, end: 20101022
  11. PENTAZOCINE LACTATE [Concomitant]
     Route: 030
     Dates: start: 20101231, end: 20110103
  12. PREDNISOLONE [Concomitant]
     Route: 048
     Dates: start: 20101224, end: 20110103
  13. ACETAMINOPHEN [Concomitant]
     Indication: ANTIPYRESIS
     Route: 048
     Dates: start: 20101230, end: 20110101
  14. ALLOID G [Concomitant]
     Route: 048
     Dates: start: 20101230, end: 20110103
  15. LIDOMEX [Concomitant]
     Route: 061
     Dates: start: 20101209, end: 20101209
  16. GARENOXACIN MESYLATE [Concomitant]
     Route: 048
     Dates: start: 20101216
  17. PENTAMIDINE ISETHIONATE [Concomitant]
     Dates: start: 20101222, end: 20101224
  18. ETOPOSIDE [Concomitant]
     Dates: start: 20110102, end: 20110102
  19. CALCICOL [Concomitant]
     Dates: start: 20110102, end: 20110102
  20. DOBUTAMINE HCL [Concomitant]
     Dates: start: 20110103, end: 20110103
  21. VOLTAREN [Concomitant]
     Indication: ANTIPYRESIS
     Route: 054
     Dates: start: 20101119, end: 20101120
  22. ISODINE GARGLE [Concomitant]
     Dosage: ROUTE: OR
     Dates: start: 20100827, end: 20100827
  23. REMICADE [Suspect]
     Dosage: 3RD DOSE
     Route: 042
     Dates: start: 20100928
  24. MEROPENEM [Suspect]
     Indication: PRODUCT USED FOR UNKNOWN INDICATION
     Dates: start: 20101027, end: 20101105
  25. ALBUMIN (HUMAN) [Suspect]
     Dates: start: 20110102, end: 20110102
  26. RABEPRAZOLE SODIUM [Suspect]
     Route: 048
     Dates: start: 20101027, end: 20101027
  27. DEPAS [Concomitant]
     Indication: INSOMNIA
     Route: 048
     Dates: start: 20100915, end: 20101122
  28. NEO-MINOPHAGEN C [Concomitant]
     Dates: start: 20100817, end: 20100817
  29. NEO-MINOPHAGEN C [Concomitant]
     Dates: start: 20100823, end: 20100823
  30. NEO-MINOPHAGEN C [Concomitant]
     Dates: start: 20100928, end: 20100928
  31. FUNGIZONE [Concomitant]
     Route: 048
     Dates: start: 20100926, end: 20100927
  32. LACTATED RINGER'S [Concomitant]
     Dosage: DOSE = 500 DF
     Dates: start: 20101022, end: 20101022
  33. VITAMEDIN [Concomitant]
     Dates: start: 20101023, end: 20101029
  34. VEEN-D [Concomitant]
     Dates: start: 20101025, end: 20101025
  35. PREDNISOLONE [Concomitant]
     Route: 048
     Dates: start: 20101201, end: 20101224
  36. SODIUM CHLORIDE 10% [Concomitant]
     Route: 042
     Dates: start: 20101102, end: 20101102
  37. FERRO-GRADUMET [Concomitant]
     Route: 048
     Dates: start: 20101105, end: 20101110
  38. SOLDEM 1 [Concomitant]
     Dates: start: 20101221, end: 20101223
  39. FAMOTIDINE [Concomitant]
     Route: 048
     Dates: start: 20101106
  40. VOLTAREN [Concomitant]
     Route: 054
     Dates: start: 20100823, end: 20100823
  41. SULFASALAZINE [Concomitant]
     Dates: start: 20090201
  42. SULFASALAZINE [Concomitant]
     Dates: start: 20091027
  43. PREDNISOLONE [Suspect]
     Route: 048
     Dates: start: 20100901, end: 20100907
  44. ALBUMIN (HUMAN) [Suspect]
     Indication: PRODUCT USED FOR UNKNOWN INDICATION
     Dates: start: 20101202, end: 20101204
  45. RABEPRAZOLE SODIUM [Suspect]
     Indication: PRODUCT USED FOR UNKNOWN INDICATION
     Route: 048
     Dates: start: 20101028, end: 20101028
  46. URSO 250 [Concomitant]
     Indication: HEPATITIS C
     Route: 048
     Dates: start: 20101029, end: 20101122
  47. HYDROCORTISONE BUTYRATE [Concomitant]
     Indication: PSORIATIC ARTHROPATHY
     Route: 061
  48. ANTEBATE [Concomitant]
     Indication: PSORIATIC ARTHROPATHY
     Route: 061
  49. SELBEX [Concomitant]
     Indication: PROPHYLAXIS
     Route: 048
     Dates: start: 20101121, end: 20110103
  50. HEPAFLUSH [Concomitant]
     Dates: start: 20100823, end: 20100823
  51. HEPAFLUSH [Concomitant]
     Dates: start: 20100817, end: 20100817
  52. HEPAFLUSH [Concomitant]
     Dates: start: 20101221, end: 20110103
  53. ISOTONIC SODIUM CHLORIDE [Concomitant]
     Route: 042
     Dates: start: 20100817, end: 20100817
  54. ISOTONIC SODIUM CHLORIDE [Concomitant]
     Route: 042
     Dates: start: 20101001, end: 20110103
  55. LAMISIL [Concomitant]
     Route: 061
     Dates: start: 20100818, end: 20100818
  56. DOVONEX [Concomitant]
     Route: 061
     Dates: start: 20100928, end: 20100928
  57. FUNGIZONE [Concomitant]
     Route: 048
     Dates: start: 20100928, end: 20100929
  58. FUNGIZONE [Concomitant]
     Route: 048
     Dates: start: 20101116, end: 20101122
  59. NON-PYRINE COLD PREPARATION [Concomitant]
     Route: 048
     Dates: start: 20100926, end: 20100929
  60. ATROPINE SULFATE [Concomitant]
     Route: 030
     Dates: start: 20101025, end: 20101025
  61. POLAPREZINC [Concomitant]
     Route: 048
     Dates: start: 20101112, end: 20101122
  62. FERRO-GRADUMET [Concomitant]
     Route: 048
     Dates: start: 20101112, end: 20101122
  63. HUMALOG [Concomitant]
     Dates: start: 20101119, end: 20101119
  64. DEXALTIN [Concomitant]
     Route: 061
     Dates: start: 20101201, end: 20101201
  65. POTASSIUM CHLORIDE [Concomitant]
     Dates: start: 20101201, end: 20101206
  66. TPN ELECTROLYTES IN PLASTIC CONTAINER [Concomitant]
     Dates: start: 20110102, end: 20110103
  67. LIDOMEX [Concomitant]
     Route: 061
     Dates: start: 20101008, end: 20101008
  68. INTAL [Concomitant]
     Route: 055
     Dates: start: 20101222, end: 20101228
  69. ALINAMIN F [Concomitant]
     Dates: start: 20110102, end: 20110102
  70. CLINDAMYCIN [Concomitant]
     Dates: start: 20110102, end: 20110103
  71. INTRAVENOUS HYPERALIMENTATION [Concomitant]
     Dosage: DOSE: 500DF
     Dates: start: 20110102, end: 20110103
  72. CIPRO [Concomitant]
     Dates: end: 20101027
  73. LOCOID C [Concomitant]
     Indication: PSORIATIC ARTHROPATHY
     Route: 061
     Dates: start: 20101008, end: 20101008
  74. OLMESARTAN MEDOXOMIL [Concomitant]
     Route: 048
     Dates: start: 20100901, end: 20100907
  75. CEFOTIAM HYDROCHLORIDE [Concomitant]
     Dates: end: 20101006
  76. OLOPATADINE HCL [Concomitant]
     Route: 048
     Dates: start: 20100914, end: 20100915
  77. REMICADE [Suspect]
     Route: 042
     Dates: start: 20100817
  78. PREDNISOLONE [Suspect]
     Indication: PSORIATIC ARTHROPATHY
     Route: 048
     Dates: start: 20100914, end: 20110103
  79. FIRSTCIN [Suspect]
     Dates: start: 20101119, end: 20101119
  80. RABEPRAZOLE SODIUM [Suspect]
     Route: 048
     Dates: start: 20101023, end: 20101025
  81. ALDACTONE [Suspect]
     Indication: PRODUCT USED FOR UNKNOWN INDICATION
     Route: 048
     Dates: start: 20101112, end: 20101114
  82. ALDACTONE [Suspect]
     Route: 048
     Dates: start: 20101115, end: 20101115
  83. OXAROL [Concomitant]
     Indication: PSORIATIC ARTHROPATHY
     Route: 061
  84. HEPAFLUSH [Concomitant]
     Dates: start: 20100827, end: 20100827
  85. NEO-MINOPHAGEN C [Concomitant]
     Dates: start: 20100914, end: 20100914
  86. LEVOFLOXACIN [Concomitant]
     Route: 048
     Dates: start: 20101222, end: 20110103
  87. DOVONEX [Concomitant]
     Route: 061
     Dates: start: 20100901, end: 20100901
  88. HEPARIN [Concomitant]
     Route: 061
     Dates: start: 20101015, end: 20101201
  89. VEEN-F [Concomitant]
     Dates: start: 20101023, end: 20101025
  90. ATARAX [Concomitant]
     Dates: start: 20101231, end: 20110103
  91. ATARAX [Concomitant]
     Dates: start: 20110101, end: 20110103
  92. PRIMPERAN TAB [Concomitant]
     Dates: start: 20101024, end: 20101024
  93. PREDNISOLONE [Concomitant]
     Route: 048
     Dates: start: 20101025, end: 20101109
  94. SOLITA-T NO.4 [Concomitant]
     Dates: start: 20101026, end: 20101104
  95. SOLDEM 1 [Concomitant]
     Dates: start: 20100101, end: 20110103
  96. DEXTROSE [Concomitant]
     Dates: start: 20101119, end: 20110103
  97. HUMALOG [Concomitant]
     Dates: start: 20101220, end: 20101220
  98. ACETAMINOPHEN [Concomitant]
     Route: 048
     Dates: start: 20101119, end: 20101123
  99. TPN ELECTROLYTES IN PLASTIC CONTAINER [Concomitant]
     Dates: start: 20101201, end: 20101206
  100. SODIUM BICARBONATE [Concomitant]
     Dates: start: 20110102, end: 20110102
  101. ANTEBATE [Concomitant]
     Dosage: START DATE REPORTED AS PRIOR TO INITIATION OF INFLIXIMAB
     Route: 061
  102. CLOBETASOL PROPIONATE [Concomitant]
     Dosage: START DATE REPORTED AS PRIOR TO INITIATION OF INFLIXIMAB
     Route: 061
  103. ISODINE GARGLE [Concomitant]
     Dates: start: 20100928, end: 20100928
  104. CEFOPERAZONE SODIUM [Concomitant]
     Dates: start: 20101006, end: 20101012
  105. SULFAMETHOXAZOLE [Suspect]
     Indication: PRODUCT USED FOR UNKNOWN INDICATION
     Dosage: 6 TABS
     Route: 048
     Dates: start: 20101102, end: 20101115
  106. SULFAMETHOXAZOLE [Suspect]
     Dosage: 2 TABS
     Route: 048
     Dates: start: 20101118, end: 20101119
  107. LASIX [Suspect]
     Route: 048
     Dates: start: 20101029, end: 20101031
  108. LASIX [Suspect]
     Route: 048
     Dates: start: 20101026, end: 20101027
  109. LASIX [Suspect]
     Route: 048
     Dates: start: 20101215, end: 20101216
  110. ALBUMIN (HUMAN) [Suspect]
     Dates: start: 20101231, end: 20101231
  111. RABEPRAZOLE SODIUM [Suspect]
     Route: 048
     Dates: start: 20101102, end: 20101106
  112. ALDACTONE [Suspect]
     Route: 048
     Dates: start: 20101102, end: 20101106
  113. HEPAFLUSH [Concomitant]
     Dates: start: 20101118, end: 20101124
  114. ISOTONIC SODIUM CHLORIDE [Concomitant]
     Route: 042
     Dates: start: 20100831, end: 20100831
  115. DISTILLED WATER [Concomitant]
     Dates: start: 20100831, end: 20100831
  116. DISTILLED WATER [Concomitant]
     Dosage: ALL REPORTED AS 20 DF
     Dates: start: 20100817, end: 20100827
  117. DISTILLED WATER [Concomitant]
     Dates: start: 20101122, end: 20101124
  118. NEO-MINOPHAGEN C [Concomitant]
     Dates: start: 20100826, end: 20100826
  119. NEO-MINOPHAGEN C [Concomitant]
     Dates: start: 20101018
  120. NEO-MINOPHAGEN C [Concomitant]
     Dates: start: 20100819, end: 20100819
  121. DOVONEX [Concomitant]
     Route: 061
     Dates: start: 20100926, end: 20100926
  122. FUNGIZONE [Concomitant]
     Route: 048
     Dates: start: 20100930, end: 20101018
  123. PROPETO [Concomitant]
     Route: 061
     Dates: start: 20101023, end: 20101129
  124. MUCOSTA [Concomitant]
     Route: 048
     Dates: start: 20101026, end: 20101122
  125. POLAPREZINC [Concomitant]
     Dosage: DOSE: 150DF A DAY
     Route: 048
     Dates: start: 20101105, end: 20101110
  126. LEVOTHYROXINE SODIUM [Concomitant]
     Dosage: DOSE: 25DF
     Route: 048
     Dates: start: 20101106, end: 20101126
  127. ALLOID G [Concomitant]
     Route: 048
     Dates: start: 20101124, end: 20101130
  128. LIDOMEX [Concomitant]
     Route: 061
     Dates: start: 20101203, end: 20101212
  129. OXAROL [Concomitant]
     Dosage: START DATE REPORTED AS PRIOR TO INITIATION OF INFLIXIMAB
     Route: 061
  130. CIPRO [Concomitant]
     Dates: end: 20101216
  131. LASIX [Suspect]
     Route: 048
     Dates: start: 20101117, end: 20101122
  132. ALBUMIN (HUMAN) [Suspect]
     Dates: start: 20101119, end: 20101124
  133. FIRSTCIN [Suspect]
     Dates: start: 20101105, end: 20101110
  134. RABEPRAZOLE SODIUM [Suspect]
     Route: 048
     Dates: start: 20101029, end: 20101031
  135. URSO 250 [Concomitant]
     Route: 048
     Dates: start: 20100914, end: 20101018
  136. CLOBETASOL PROPIONATE [Concomitant]
     Indication: PSORIATIC ARTHROPATHY
     Route: 061
  137. DEPAS [Concomitant]
     Route: 048
     Dates: start: 20100914, end: 20100914
  138. HEPAFLUSH [Concomitant]
     Dates: start: 20100824, end: 20100825
  139. HEPAFLUSH [Concomitant]
     Dates: start: 20101001, end: 20101012
  140. HEPAFLUSH [Concomitant]
     Dates: start: 20101201, end: 20101216
  141. ISOTONIC SODIUM CHLORIDE [Concomitant]
     Route: 042
     Dates: start: 20100821, end: 20100827
  142. NEO-MINOPHAGEN C [Concomitant]
     Dates: end: 20101012
  143. LEVOFLOXACIN [Concomitant]
     Route: 048
     Dates: start: 20100827, end: 20100830
  144. LIDEX CREAM [Concomitant]
  145. METHYLPREDNISOLONE SODIUM SUCCINATE [Concomitant]
     Dates: start: 20110101, end: 20110103
  146. PENTAZOCINE LACTATE [Concomitant]
     Route: 030
     Dates: start: 20101024, end: 20101024
  147. PREDNISOLONE [Concomitant]
     Route: 048
     Dates: start: 20101109, end: 20101116
  148. LAC-B [Concomitant]
     Route: 048
     Dates: start: 20101201, end: 20101207
  149. TORSEMIDE [Concomitant]
     Route: 048
     Dates: start: 20101216
  150. MEPTIN [Concomitant]
     Route: 055
     Dates: start: 20101222, end: 20101228
  151. LOXONIN [Concomitant]
     Indication: PAIN PROPHYLAXIS
     Dosage: DOSE: 60DF
     Route: 048
     Dates: start: 20101230, end: 20110103
  152. COAHIBITOR [Concomitant]
     Dates: start: 20101231, end: 20110103
  153. ELEMENMIC [Concomitant]
     Dates: start: 20110102, end: 20110103
  154. SULFAMETHOXAZOLE [Suspect]
     Dosage: 6 TABS
     Route: 048
     Dates: start: 20101029, end: 20101031
  155. SULFAMETHOXAZOLE [Suspect]
     Dosage: 9 TABS
     Route: 048
     Dates: start: 20101022, end: 20101025
  156. LASIX [Suspect]
     Route: 048
     Dates: start: 20101125, end: 20101125
  157. FIRSTCIN [Suspect]
     Indication: PRODUCT USED FOR UNKNOWN INDICATION
     Dates: start: 20101118, end: 20101118
  158. ROCEPHIN [Suspect]
     Indication: PRODUCT USED FOR UNKNOWN INDICATION
     Dates: start: 20101118, end: 20101119
  159. DEPAS [Concomitant]
     Route: 048
     Dates: start: 20101215, end: 20101225
  160. DISTILLED WATER [Concomitant]
     Dates: start: 20100928, end: 20100928
  161. DISTILLED WATER [Concomitant]
     Dates: start: 20101102, end: 20101102
  162. DOVONEX [Concomitant]
     Route: 061
     Dates: start: 20101008, end: 20101008
  163. FUNGIZONE [Concomitant]
     Route: 048
     Dates: start: 20101103, end: 20101109
  164. HYALEIN [Concomitant]
     Route: 031
     Dates: start: 20101008, end: 20101008
  165. METHYLPREDNISOLONE SODIUM SUCCINATE [Concomitant]
     Dates: start: 20101022, end: 20101024
  166. VEEN-F [Concomitant]
     Dates: start: 20110102, end: 20110102
  167. VITAMEDIN [Concomitant]
     Dates: start: 20110102, end: 20110103
  168. IMMUNE GLOBULIN (HUMAN) [Concomitant]
     Dates: start: 20101119, end: 20101121
  169. SOLDEM 1 [Concomitant]
     Dates: start: 20101119, end: 20101120
  170. SLOW-K [Concomitant]
     Route: 048
     Dates: start: 20101213, end: 20101222
  171. NOVO HEPARIN [Concomitant]
     Dates: start: 20110102, end: 20110102
  172. VANCOMYCIN [Concomitant]
     Dates: start: 20110102, end: 20110103
  173. DOPAMINE HCL [Concomitant]
     Dates: start: 20110103, end: 20110103
  174. OLMESARTAN MEDOXOMIL [Concomitant]
     Indication: HYPERTENSION
     Route: 048
     Dates: start: 20100914, end: 20101018
  175. CEFOTIAM HYDROCHLORIDE [Concomitant]
     Dates: start: 20100821, end: 20100827
  176. TRH [Concomitant]
     Route: 042
     Dates: start: 20101115, end: 20101115
  177. REMICADE [Suspect]
     Indication: PSORIATIC ARTHROPATHY
     Route: 042
     Dates: start: 20100831
  178. SULFAMETHOXAZOLE [Suspect]
     Dosage: 6 TABS
     Route: 048
     Dates: start: 20101025, end: 20101111
  179. ALBUMIN (HUMAN) [Suspect]
     Dates: start: 20101102, end: 20101106
  180. RABEPRAZOLE SODIUM [Suspect]
     Route: 048
     Dates: start: 20101026, end: 20101026
  181. ALDACTONE [Suspect]
     Route: 048
     Dates: start: 20101116, end: 20101122
  182. URSO 250 [Concomitant]
     Route: 048
     Dates: start: 20100817, end: 20100906
  183. URSO 250 [Concomitant]
     Route: 048
     Dates: start: 20101221, end: 20110103
  184. SELBEX [Concomitant]
     Route: 048
     Dates: start: 20100928, end: 20101025
  185. DEPAS [Concomitant]
     Route: 048
     Dates: start: 20100901, end: 20100913
  186. HEPAFLUSH [Concomitant]
     Dates: start: 20100821, end: 20100822
  187. NEO-MINOPHAGEN C [Concomitant]
     Dates: start: 20100831, end: 20100831
  188. LACTATED RINGER'S [Concomitant]
     Dates: start: 20110102, end: 20110102
  189. METHYLPREDNISOLONE SODIUM SUCCINATE [Concomitant]
     Dates: start: 20101221, end: 20101223
  190. ATARAX [Concomitant]
     Dates: start: 20101024, end: 20101025
  191. PREDNISOLONE [Concomitant]
     Route: 048
     Dates: start: 20101116, end: 20101201
  192. IMMUNE GLOBULIN (HUMAN) [Concomitant]
     Dates: start: 20101028, end: 20101030
  193. MAINTENANCE MEDIUM WITH GLUCOSE [Concomitant]
     Dosage: DOSE: 500DF
     Dates: start: 20101201, end: 20101204
  194. PROPOFOL [Concomitant]
     Dates: start: 20110103, end: 20110103
  195. ISODINE GARGLE [Concomitant]
     Dates: start: 20100901, end: 20100901
  196. ISODINE GARGLE [Concomitant]
     Dates: start: 20101116, end: 20101116
  197. OLOPATADINE HCL [Concomitant]
     Route: 048
     Dates: start: 20100830, end: 20100830

REACTIONS (14)
  - LIVER DISORDER [None]
  - CELLULITIS [None]
  - HISTIOCYTOSIS HAEMATOPHAGIC [None]
  - RENAL DISORDER [None]
  - PNEUMOCYSTIS JIROVECI PNEUMONIA [None]
  - ANAEMIA [None]
  - MULTI-ORGAN FAILURE [None]
  - ASCITES [None]
  - DRUG ERUPTION [None]
  - HEPATITIS C [None]
  - BURSITIS [None]
  - PYREXIA [None]
  - PLATELET COUNT DECREASED [None]
  - INFECTION [None]
